FAERS Safety Report 25710161 (Version 2)
Quarter: 2025Q3

REPORT INFORMATION
  Report Type: Spontaneous
  Country: TN (occurrence: TN)
  Receive Date: 20250821
  Receipt Date: 20250905
  Transmission Date: 20251021
  Serious: Yes (Hospitalization, Other)
  Sender: RANBAXY
  Company Number: TN-SUN PHARMACEUTICAL INDUSTRIES INC-2025R1-523480

PATIENT
  Age: 36 Year
  Sex: Female

DRUGS (1)
  1. MEDROXYPROGESTERONE ACETATE [Suspect]
     Active Substance: MEDROXYPROGESTERONE ACETATE
     Indication: Contraception
     Route: 065

REACTIONS (4)
  - Syncope [Recovering/Resolving]
  - Cerebrovascular accident [Unknown]
  - Trismus [Recovering/Resolving]
  - Facial paralysis [Unknown]
